FAERS Safety Report 20329911 (Version 1)
Quarter: 2022Q1

REPORT INFORMATION
  Report Type: Report from Study
  Country: IT (occurrence: IT)
  Receive Date: 20220113
  Receipt Date: 20220113
  Transmission Date: 20220423
  Serious: Yes (Hospitalization)
  Sender: FDA-Public Use
  Company Number: None

PATIENT
  Age: 86 Year
  Sex: Male

DRUGS (12)
  1. CLOPIDOGREL [Suspect]
     Active Substance: CLOPIDOGREL BISULFATE
     Dosage: 75MG
     Route: 048
     Dates: start: 20210101, end: 20211201
  2. ASPIRIN [Suspect]
     Active Substance: ASPIRIN
     Dosage: 1DF
     Route: 065
     Dates: start: 20210101, end: 20211201
  3. KEPPRA [Concomitant]
     Active Substance: LEVETIRACETAM
     Dosage: KEPPRA 500 MG FILM-COATED TABLETS, 2DF
     Route: 048
  4. ALLOPURINOL [Concomitant]
     Active Substance: ALLOPURINOL
     Dosage: ZYLORIC 300 MG TABLETS
  5. ATORVASTATIN [Concomitant]
     Active Substance: ATORVASTATIN
     Dosage: TORVAST 40 MG TABLETS COATED WITH FILM
  6. METFORMIN HYDROCHLORIDE [Concomitant]
     Active Substance: METFORMIN HYDROCHLORIDE
     Dosage: 1500MG
  7. OMEPRAZOLE [Concomitant]
     Active Substance: OMEPRAZOLE
     Dosage: 20MG
  8. RANEXA [Concomitant]
     Active Substance: RANOLAZINE
     Dosage: RANEXA 375 MG PROLONGED-RELEASE TABLETS, 2DF
  9. FOLINA [Concomitant]
     Dosage: FOLINA 5 MG SOFT CAPSULES
  10. LASIX [Concomitant]
     Active Substance: FUROSEMIDE
     Dosage: LASIX 25 MG TABLETS
  11. BISOPROLOL [Concomitant]
     Active Substance: BISOPROLOL
     Dosage: CONGESCOR 3.75 MG, FILM-COATED TABLETS
  12. OLMESARTAN MEDOXOMIL [Concomitant]
     Active Substance: OLMESARTAN MEDOXOMIL
     Dosage: 40MG

REACTIONS (1)
  - Paranasal sinus haematoma [Recovering/Resolving]

NARRATIVE: CASE EVENT DATE: 20211201
